FAERS Safety Report 6093252-6 (Version None)
Quarter: 2009Q1

REPORT INFORMATION
  Report Type: 
  Country: None (occurrence: None)
  Receive Date: 20090226
  Receipt Date: 20090217
  Transmission Date: 20090719
  Serious: Yes (Hospitalization)
  Sender: FDA-Public Use
  Company Number: IT-PFIZER INC-2008090995

PATIENT

DRUGS (3)
  1. SUNITINIB MALATE [Suspect]
     Indication: BREAST CANCER
     Dosage: 25 MG, 1X/DAY
     Route: 048
     Dates: start: 20080328, end: 20081014
  2. MAALOX [Concomitant]
     Route: 048
     Dates: start: 20080909, end: 20081027
  3. RABEPRAZOLE SODIUM [Concomitant]
     Route: 048
     Dates: start: 20080930

REACTIONS (1)
  - INTESTINAL PERFORATION [None]
